FAERS Safety Report 8888363 (Version 4)
Quarter: 2013Q3

REPORT INFORMATION
  Report Type: Spontaneous
  Country: US (occurrence: US)
  Receive Date: 20121106
  Receipt Date: 20130913
  Transmission Date: 20140515
  Serious: Yes (Other)
  Sender: FDA-Public Use
  Company Number: PHEH2012US021716

PATIENT
  Sex: Female
  Weight: 45.35 kg

DRUGS (1)
  1. ZOMETA [Suspect]
     Indication: OSTEOPOROSIS
     Route: 042
     Dates: start: 20040322, end: 20051102

REACTIONS (6)
  - Cystitis interstitial [Unknown]
  - Haematuria [Unknown]
  - Pneumonia [Unknown]
  - Humerus fracture [Recovered/Resolved]
  - Periostitis [Unknown]
  - Vitamin D deficiency [Unknown]
